FAERS Safety Report 23759056 (Version 1)
Quarter: 2024Q2

REPORT INFORMATION
  Report Type: Spontaneous
  Country: US (occurrence: None)
  Receive Date: 20240418
  Receipt Date: 20240418
  Transmission Date: 20240715
  Serious: No
  Sender: FDA-Public Use
  Company Number: US-ROCHE-3506847

PATIENT

DRUGS (1)
  1. KADCYLA [Suspect]
     Active Substance: ADO-TRASTUZUMAB EMTANSINE
     Indication: Product used for unknown indication
     Route: 065

REACTIONS (8)
  - Pyrexia [Unknown]
  - Chills [Unknown]
  - Pain [Unknown]
  - Headache [Unknown]
  - Epistaxis [Unknown]
  - Nausea [Unknown]
  - Dysgeusia [Unknown]
  - Neuropathy peripheral [Unknown]
